FAERS Safety Report 8849059 (Version 1)
Quarter: 2012Q4

REPORT INFORMATION
  Report Type: 
  Country: KR (occurrence: KR)
  Receive Date: 20121019
  Receipt Date: 20121019
  Transmission Date: 20130627
  Serious: Yes (Hospitalization)
  Sender: FDA-Public Use
  Company Number: KR-MPIJNJ-2012-06998

PATIENT

DRUGS (3)
  1. VELCADE [Suspect]
     Indication: MULTIPLE MYELOMA
     Route: 042
  2. MELPHALAN [Concomitant]
     Indication: MULTIPLE MYELOMA
  3. PREDNISOLONE [Concomitant]
     Indication: MULTIPLE MYELOMA

REACTIONS (1)
  - Dementia [Not Recovered/Not Resolved]
